FAERS Safety Report 8001663-4 (Version None)
Quarter: 2011Q4

REPORT INFORMATION
  Report Type: 
  Country: None (occurrence: None)
  Receive Date: 20111219
  Receipt Date: 20111208
  Transmission Date: 20120403
  Serious: Yes (Hospitalization)
  Sender: FDA-Public Use
  Company Number: 100009864

PATIENT
  Age: 54 Year
  Sex: Female

DRUGS (7)
  1. THIAMINE (THIAMINE) (THIAMINE) [Concomitant]
  2. PYRIDOXINE (PYRIDOXINE) (PYRIDOXINE) [Concomitant]
  3. NICARDIPINE HCL [Concomitant]
  4. CITALOPRAM HYDROBROMIDE [Suspect]
     Indication: MAJOR DEPRESSION
     Dosage: 20 MG (20 MG, 1 IN 1 D), ORAL
     Route: 048
  5. CLORAZEPATE DIPOTASSIUM [Suspect]
     Indication: ALCOHOL WITHDRAWAL SYNDROME
     Dosage: 100 MG, 20 MG
  6. ACAMPROSATE CALCIUM [Suspect]
     Dosage: 1332 MG
  7. CYAMEMAZINE (CYAMEMAZINE) [Suspect]
     Indication: MAJOR DEPRESSION
     Dosage: 25 MG

REACTIONS (16)
  - AGITATION [None]
  - CATATONIA [None]
  - AKINESIA [None]
  - INCOHERENT [None]
  - MUTISM [None]
  - RESTLESSNESS [None]
  - POSTURE ABNORMAL [None]
  - NEGATIVISM [None]
  - MUSCLE RIGIDITY [None]
  - DEPRESSION [None]
  - BIPOLAR II DISORDER [None]
  - ALCOHOL WITHDRAWAL SYNDROME [None]
  - FLIGHT OF IDEAS [None]
  - DISORIENTATION [None]
  - DRUG WITHDRAWAL SYNDROME [None]
  - SPEECH DISORDER [None]
